FAERS Safety Report 9557019 (Version 1)
Quarter: 2013Q3

REPORT INFORMATION
  Report Type: Spontaneous
  Country: US (occurrence: US)
  Receive Date: 20130926
  Receipt Date: 20130926
  Transmission Date: 20140515
  Serious: No
  Sender: FDA-Public Use
  Company Number: US-TARO-2012P1064715

PATIENT
  Sex: Female

DRUGS (1)
  1. MALATHION LOTION USP 0.5% [Suspect]

REACTIONS (1)
  - Skin irritation [Unknown]
